FAERS Safety Report 6820025-6 (Version None)
Quarter: 2010Q3

REPORT INFORMATION
  Report Type: 
  Country: None (occurrence: None)
  Receive Date: 20100707
  Receipt Date: 20100702
  Transmission Date: 20110219
  Serious: Yes (Other)
  Sender: FDA-Public Use
  Company Number: A0868364A

PATIENT
  Age: 36 Year
  Sex: Female

DRUGS (1)
  1. ALLI [Suspect]
     Indication: PRODUCT USED FOR UNKNOWN INDICATION
     Route: 048
     Dates: start: 20100702, end: 20100702

REACTIONS (6)
  - CONTUSION [None]
  - PAIN IN EXTREMITY [None]
  - SENSORY DISTURBANCE [None]
  - THROMBOSIS [None]
  - VARICOSE VEIN [None]
  - VASCULAR INJURY [None]
